FAERS Safety Report 13710861 (Version 1)
Quarter: 2017Q3

REPORT INFORMATION
  Report Type: Report from Study
  Country: None (occurrence: BR)
  Receive Date: 20170703
  Receipt Date: 20170703
  Transmission Date: 20171127
  Serious: Yes (Other)
  Sender: FDA-Public Use
  Company Number: BR-ABBVIE-17K-020-1939529-00

PATIENT
  Age: 61 Year
  Sex: Female
  Weight: 60 kg

DRUGS (12)
  1. HUMIRA [Suspect]
     Active Substance: ADALIMUMAB
     Indication: CROHN^S DISEASE
     Dosage: WEEK 0
     Route: 058
     Dates: start: 20150709, end: 20150709
  2. HUMIRA [Suspect]
     Active Substance: ADALIMUMAB
     Route: 058
     Dates: start: 201508
  3. HUMIRA [Suspect]
     Active Substance: ADALIMUMAB
     Dosage: WEEK 2
     Route: 058
     Dates: start: 201507, end: 201507
  4. MESALAZINE [Concomitant]
     Active Substance: MESALAMINE
     Indication: CROHN^S DISEASE
     Route: 048
  5. MESALAZINE [Concomitant]
     Active Substance: MESALAMINE
     Indication: COLITIS
  6. VARICOSS [Concomitant]
     Indication: PAIN IN EXTREMITY
     Dosage: 2 OR 3 TABLETS PER DAY
     Route: 048
     Dates: start: 2015
  7. VARICOSS [Concomitant]
     Indication: CARDIOVASCULAR DISORDER
  8. VICOG [Concomitant]
     Active Substance: VINPOCETINE
     Indication: MEMORY IMPAIRMENT
     Route: 048
     Dates: start: 2015
  9. RIVOTRIL [Concomitant]
     Active Substance: CLONAZEPAM
     Indication: SLEEP DISORDER THERAPY
     Route: 048
  10. HUMIRA [Suspect]
     Active Substance: ADALIMUMAB
     Route: 058
     Dates: start: 20170310
  11. OMEGA 3 [Suspect]
     Active Substance: OMEGA-3 FATTY ACIDS
     Indication: PRODUCT USED FOR UNKNOWN INDICATION
     Route: 065
     Dates: end: 20170328
  12. LABIRIN [Concomitant]
     Active Substance: BETAHISTINE
     Indication: LABYRINTHITIS
     Dosage: 1 OR 2 TABLETS PER DAY.
     Route: 048
     Dates: start: 2014

REACTIONS (19)
  - Weight decreased [Unknown]
  - Weight increased [Unknown]
  - Abdominal distension [Unknown]
  - Drug ineffective [Unknown]
  - Fibromyalgia [Not Recovered/Not Resolved]
  - Abdominal pain [Recovering/Resolving]
  - Intestinal haemorrhage [Recovered/Resolved]
  - Malaise [Unknown]
  - Gastrointestinal inflammation [Not Recovered/Not Resolved]
  - Retching [Recovered/Resolved]
  - Crohn^s disease [Unknown]
  - Gastrointestinal inflammation [Recovered/Resolved]
  - Inflammation of wound [Unknown]
  - Diarrhoea [Recovered/Resolved]
  - Osteoarthritis [Not Recovered/Not Resolved]
  - Spinal pain [Recovered/Resolved]
  - Colitis ulcerative [Unknown]
  - Diarrhoea haemorrhagic [Recovered/Resolved]
  - Frequent bowel movements [Unknown]

NARRATIVE: CASE EVENT DATE: 20170330
